FAERS Safety Report 7907787-1 (Version None)
Quarter: 2011Q4

REPORT INFORMATION
  Report Type: 
  Country: None (occurrence: None)
  Receive Date: 20111110
  Receipt Date: 20110301
  Transmission Date: 20120403
  Serious: No
  Sender: FDA-Public Use
  Company Number: US-BAYER-2011-019129

PATIENT
  Sex: Female

DRUGS (1)
  1. CLIMARA [Suspect]
     Dosage: .1 MG, UNK
     Dates: start: 20100601

REACTIONS (4)
  - RASH MACULAR [None]
  - PRODUCT ADHESION ISSUE [None]
  - MEDICATION RESIDUE [None]
  - SKIN WRINKLING [None]
